FAERS Safety Report 9595029 (Version 2)
Quarter: 2013Q4

REPORT INFORMATION
  Report Type: Spontaneous
  Country: US (occurrence: US)
  Receive Date: 20131004
  Receipt Date: 20131004
  Transmission Date: 20140711
  Serious: No
  Sender: FDA-Public Use
  Company Number: US-PURDUE-USA-2012-0093110

PATIENT
  Sex: Female

DRUGS (3)
  1. BUTRANS [Suspect]
     Indication: PRODUCT USED FOR UNKNOWN INDICATION
     Dosage: 5 MCG, UNK
     Route: 062
     Dates: start: 20120906
  2. BUTRANS [Suspect]
     Dosage: 10 MCG, UNK
     Route: 062
  3. BUTRANS [Suspect]
     Dosage: 20 MCG, UNK
     Route: 062
     Dates: start: 20121121

REACTIONS (7)
  - Drug ineffective [Recovered/Resolved]
  - Application site pain [Unknown]
  - Inappropriate schedule of drug administration [Recovered/Resolved]
  - Application site irritation [Unknown]
  - Application site erythema [Unknown]
  - Product adhesion issue [Unknown]
  - Application site pruritus [Unknown]
